FAERS Safety Report 5317762-1 (Version None)
Quarter: 2007Q2

REPORT INFORMATION
  Report Type: 
  Country: None (occurrence: None)
  Receive Date: 20070507
  Receipt Date: 20070427
  Transmission Date: 20071010
  Serious: Yes (Other)
  Sender: FDA-Public Use
  Company Number: JP-ASTRAZENECA-2007AP02228

PATIENT
  Age: 78 Year
  Sex: Female
  Weight: 27.5 kg

DRUGS (16)
  1. MEROPEN [Suspect]
     Indication: PYREXIA
     Route: 041
     Dates: start: 20070227, end: 20070303
  2. TOLEDOMIN [Concomitant]
     Indication: DEPRESSIVE SYMPTOM
     Route: 048
     Dates: start: 20060329
  3. TRIPAREN NO 1 [Concomitant]
     Indication: PARENTERAL NUTRITION
     Route: 041
     Dates: start: 20070227
  4. AMINO ACID INJ [Concomitant]
     Indication: PARENTERAL NUTRITION
     Route: 041
     Dates: start: 20070227
  5. GASTER [Concomitant]
     Indication: GASTRIC ULCER
     Route: 041
     Dates: start: 20070227
  6. PANTENYL [Concomitant]
     Indication: ILEUS
     Route: 041
     Dates: start: 20070227
  7. HUMULIN R [Concomitant]
     Indication: DIABETES MELLITUS
     Dosage: 10 - 14 UNITS BID
     Route: 041
     Dates: start: 20070227
  8. SODIUM CHLORIDE [Concomitant]
     Indication: ELECTROLYTE SUBSTITUTION THERAPY
     Route: 041
     Dates: start: 20070227
  9. ELEMENMIC [Concomitant]
     Indication: TRACE ELEMENT DEFICIENCY
     Route: 041
     Dates: start: 20070227
  10. VITANEURIN [Concomitant]
     Indication: VITAMIN SUPPLEMENTATION
     Route: 041
     Dates: start: 20070227
  11. ASCORBIC ACID [Concomitant]
     Indication: VITAMIN SUPPLEMENTATION
     Route: 041
     Dates: start: 20070227
  12. FRUCTOLACT [Concomitant]
     Indication: PARENTERAL NUTRITION
     Route: 041
     Dates: start: 20070228, end: 20070228
  13. DEXTROSE [Concomitant]
     Indication: PARENTERAL NUTRITION
     Route: 041
     Dates: start: 20070302, end: 20070302
  14. DEXTROSE [Concomitant]
     Route: 041
     Dates: start: 20070302, end: 20070303
  15. ASPARA-K [Concomitant]
     Indication: MINERAL SUPPLEMENTATION
     Route: 041
     Dates: start: 20070305
  16. FLUMARIN [Concomitant]
     Dates: start: 20070217

REACTIONS (3)
  - HEPATIC FUNCTION ABNORMAL [None]
  - PLATELET COUNT DECREASED [None]
  - PYREXIA [None]
